FAERS Safety Report 7920616-5 (Version None)
Quarter: 2011Q4

REPORT INFORMATION
  Report Type: 
  Country: None (occurrence: None)
  Receive Date: 20111117
  Receipt Date: 20111114
  Transmission Date: 20120403
  Serious: Yes (Hospitalization)
  Sender: FDA-Public Use
  Company Number: PHHY2011US49773

PATIENT
  Sex: Female

DRUGS (1)
  1. GILENYA [Suspect]
     Indication: MULTIPLE SCLEROSIS
     Dosage: 0.5 MG, QD
     Route: 048
     Dates: start: 20110301

REACTIONS (9)
  - MULTIPLE SCLEROSIS RELAPSE [None]
  - INFLUENZA [None]
  - PYREXIA [None]
  - NIGHT SWEATS [None]
  - NAUSEA [None]
  - VOMITING [None]
  - GASTROINTESTINAL DISORDER [None]
  - MENSTRUATION IRREGULAR [None]
  - DIARRHOEA [None]
